FAERS Safety Report 15919812 (Version 3)
Quarter: 2019Q1

REPORT INFORMATION
  Report Type: Spontaneous
  Country: JP (occurrence: JP)
  Receive Date: 20190205
  Receipt Date: 20190322
  Transmission Date: 20190417
  Serious: Yes (Other)
  Sender: FDA-Public Use
  Company Number: JP-ROCHE-2258362

PATIENT
  Age: 45 Year
  Sex: Female

DRUGS (3)
  1. HUSTAZOL (JAPAN) [Concomitant]
     Active Substance: CLOPERASTINE
     Indication: INFLUENZA
     Dosage: 60 MG/DAY
     Route: 048
     Dates: start: 20190122, end: 20190126
  2. L-CARBOCISTEINE [Concomitant]
     Active Substance: CARBOCYSTEINE
     Indication: INFLUENZA
     Dosage: 1500 MG/DAY
     Route: 048
     Dates: start: 20190122, end: 20190126
  3. XOFLUZA [Suspect]
     Active Substance: BALOXAVIR MARBOXIL
     Indication: INFLUENZA
     Route: 048
     Dates: start: 20190122, end: 20190122

REACTIONS (3)
  - Blood pressure decreased [Recovered/Resolved]
  - Haematochezia [Recovered/Resolved]
  - Diarrhoea [Recovered/Resolved]

NARRATIVE: CASE EVENT DATE: 20190123
